FAERS Safety Report 14968532 (Version 1)
Quarter: 2018Q2

REPORT INFORMATION
  Report Type: Spontaneous
  Country: JP (occurrence: JP)
  Receive Date: 20180604
  Receipt Date: 20180604
  Transmission Date: 20180711
  Serious: Yes (Other)
  Sender: FDA-Public Use
  Company Number: JP-PFIZER INC-2018219123

PATIENT
  Age: 55 Year
  Sex: Male

DRUGS (3)
  1. MEDROL [Suspect]
     Active Substance: METHYLPREDNISOLONE
     Dosage: 4 MG, UNK
     Route: 048
  2. MEDROL [Suspect]
     Active Substance: METHYLPREDNISOLONE
     Dosage: 4 MG, UNK
     Route: 048
  3. MEDROL [Suspect]
     Active Substance: METHYLPREDNISOLONE
     Dosage: 2 MG (0.5 TABLET)
     Route: 048

REACTIONS (5)
  - Adrenal insufficiency [Unknown]
  - Osteoporosis [Unknown]
  - Cushingoid [Unknown]
  - Growth hormone deficiency [Unknown]
  - Decreased immune responsiveness [Unknown]
